FAERS Safety Report 22361716 (Version 1)
Quarter: 2023Q2

REPORT INFORMATION
  Report Type: Spontaneous
  Country: JP (occurrence: None)
  Receive Date: 20230524
  Receipt Date: 20230524
  Transmission Date: 20230722
  Serious: Yes (Other)
  Sender: FDA-Public Use
  Company Number: 2023A117218

PATIENT
  Sex: Male

DRUGS (1)
  1. SYMBICORT [Suspect]
     Active Substance: BUDESONIDE\FORMOTEROL FUMARATE DIHYDRATE
     Dosage: IN THE MORNING AND EVENING, 30 DOSES
     Route: 055

REACTIONS (4)
  - Compression fracture [Unknown]
  - Saliva altered [Unknown]
  - Cough [Unknown]
  - Throat irritation [Unknown]
